FAERS Safety Report 8355486-7 (Version None)
Quarter: 2012Q2

REPORT INFORMATION
  Report Type: 
  Country: None (occurrence: None)
  Receive Date: 20120512
  Receipt Date: 20120501
  Transmission Date: 20120825
  Serious: Yes (Other)
  Sender: FDA-Public Use
  Company Number: US-ELI_LILLY_AND_COMPANY-US201203002331

PATIENT
  Sex: Female

DRUGS (2)
  1. FORTEO [Suspect]
     Indication: OSTEOPOROSIS
     Dosage: 20 UG, QD
  2. FORTEO [Suspect]
     Dosage: 20 UG, QD

REACTIONS (20)
  - MUSCLE SPASMS [None]
  - VISUAL ACUITY REDUCED [None]
  - ROAD TRAFFIC ACCIDENT [None]
  - PAIN [None]
  - NECK PAIN [None]
  - ASTHENIA [None]
  - BRONCHITIS [None]
  - ARTHRALGIA [None]
  - LOSS OF CONSCIOUSNESS [None]
  - FATIGUE [None]
  - MALAISE [None]
  - PRODUCTIVE COUGH [None]
  - MUSCULOSKELETAL PAIN [None]
  - BACK PAIN [None]
  - NAUSEA [None]
  - NASOPHARYNGITIS [None]
  - PNEUMONIA [None]
  - SOMNOLENCE [None]
  - HEADACHE [None]
  - MEMORY IMPAIRMENT [None]
